FAERS Safety Report 9817095 (Version 3)
Quarter: 2014Q1

REPORT INFORMATION
  Report Type: Spontaneous
  Country: US (occurrence: US)
  Receive Date: 20140114
  Receipt Date: 20140203
  Transmission Date: 20141002
  Serious: Yes (Death, Hospitalization)
  Sender: FDA-Public Use
  Company Number: US-BAXTER-2014BAX001315

PATIENT
  Sex: Male

DRUGS (5)
  1. DIANEAL LOW CALCIUM [Suspect]
     Indication: RENAL FAILURE CHRONIC
     Route: 033
     Dates: start: 201310, end: 20140111
  2. DIANEAL LOW CALCIUM [Suspect]
     Route: 033
     Dates: end: 20140111
  3. DIANEAL LOW CALCIUM [Suspect]
     Indication: RENAL FAILURE CHRONIC
     Route: 033
     Dates: start: 201310, end: 20140111
  4. DIANEAL LOW CALCIUM [Suspect]
     Route: 033
     Dates: end: 20140111
  5. DIANEAL LOW CALCIUM (ULTRABAG) [Suspect]
     Indication: RENAL FAILURE CHRONIC
     Route: 033
     Dates: end: 20140111

REACTIONS (3)
  - Myocardial infarction [Fatal]
  - Cardiac failure congestive [Not Recovered/Not Resolved]
  - Hypotension [Unknown]
